FAERS Safety Report 13174230 (Version 1)
Quarter: 2017Q1

REPORT INFORMATION
  Report Type: Spontaneous
  Country: FR (occurrence: FR)
  Receive Date: 20170131
  Receipt Date: 20170131
  Transmission Date: 20170428
  Serious: Yes (Life-Threatening, Hospitalization)
  Sender: FDA-Public Use
  Company Number: FR-BAUSCH-BL-2017-002387

PATIENT
  Age: 77 Year
  Sex: Male

DRUGS (9)
  1. METEOSPASMYL [Concomitant]
     Active Substance: ALVERINE CITRATE\DIMETHICONE
     Indication: PRODUCT USED FOR UNKNOWN INDICATION
  2. MOVICOL [Suspect]
     Active Substance: POLYETHYLENE GLYCOL 3350\POTASSIUM CHLORIDE\SODIUM BICARBONATE\SODIUM CHLORIDE
     Indication: GASTROINTESTINAL OBSTRUCTION
  3. NORMACOL LAVEMENT ADULT [Suspect]
     Active Substance: SODIUM PHOSPHATE, DIBASIC\SODIUM PHOSPHATE, MONOBASIC
     Indication: PRODUCT USED FOR UNKNOWN INDICATION
     Route: 054
     Dates: start: 20160713
  4. MOVICOL [Suspect]
     Active Substance: POLYETHYLENE GLYCOL 3350\POTASSIUM CHLORIDE\SODIUM BICARBONATE\SODIUM CHLORIDE
     Indication: PRODUCT USED FOR UNKNOWN INDICATION
     Dosage: 4 SACHETS PER DAY
     Route: 048
     Dates: start: 20160718, end: 20160722
  5. METEOSPASMYL [Concomitant]
     Active Substance: ALVERINE CITRATE\DIMETHICONE
     Indication: PRODUCT USED FOR UNKNOWN INDICATION
  6. MOVIPREP [Suspect]
     Active Substance: ASCORBIC ACID\POLYETHYLENE GLYCOL 3350\POTASSIUM CHLORIDE\SODIUM ASCORBATE\SODIUM CHLORIDE\SODIUM SULFATE
     Indication: GASTROINTESTINAL OBSTRUCTION
     Route: 065
     Dates: start: 20160719
  7. MOVIPREP [Suspect]
     Active Substance: ASCORBIC ACID\POLYETHYLENE GLYCOL 3350\POTASSIUM CHLORIDE\SODIUM ASCORBATE\SODIUM CHLORIDE\SODIUM SULFATE
     Route: 065
     Dates: start: 20160720
  8. LOXAPAC [Concomitant]
     Active Substance: LOXAPINE SUCCINATE
     Indication: PRODUCT USED FOR UNKNOWN INDICATION
  9. NORMACOL LAVEMENT ADULT [Suspect]
     Active Substance: SODIUM PHOSPHATE, DIBASIC\SODIUM PHOSPHATE, MONOBASIC
     Indication: GASTROINTESTINAL OBSTRUCTION
     Dosage: ONE ENEMA
     Route: 054
     Dates: start: 20160720

REACTIONS (9)
  - Confusional state [Recovered/Resolved]
  - Agitation [None]
  - Electrocardiogram ST-T change [Recovered/Resolved]
  - Tachycardia [Recovered/Resolved]
  - Malaise [None]
  - Fall [None]
  - Supraventricular extrasystoles [None]
  - Hypokalaemia [Recovered/Resolved]
  - Eyelid ptosis [None]

NARRATIVE: CASE EVENT DATE: 20160720
